FAERS Safety Report 6896474-7 (Version None)
Quarter: 2010Q3

REPORT INFORMATION
  Report Type: 
  Country: None (occurrence: None)
  Receive Date: 20100802
  Receipt Date: 20090304
  Transmission Date: 20110219
  Serious: No
  Sender: FDA-Public Use
  Company Number: US-PFIZER INC-2009169761

PATIENT
  Sex: Female
  Weight: 61.2 kg

DRUGS (5)
  1. NORVASC [Suspect]
     Indication: HYPERTENSION
     Dosage: 5 MG, 1X/DAY
     Route: 048
     Dates: start: 20050101
  2. ATENOLOL [Concomitant]
  3. CALCIUM [Concomitant]
  4. ADVAIR DISKUS 100/50 [Concomitant]
  5. TENORMIN [Concomitant]

REACTIONS (3)
  - LIP SWELLING [None]
  - OEDEMA MOUTH [None]
  - STOMATITIS [None]
